FAERS Safety Report 8604908-2 (Version None)
Quarter: 2012Q3

REPORT INFORMATION
  Report Type: 
  Country: None (occurrence: None)
  Receive Date: 20120820
  Receipt Date: 20120810
  Transmission Date: 20120928
  Serious: Yes (Death, Other)
  Sender: FDA-Public Use
  Company Number: JP-ASTELLAS-2012US003560

PATIENT
  Sex: Female
  Weight: 40 kg

DRUGS (15)
  1. GEMCITABINE HYDROCHLORIDE [Concomitant]
     Indication: ADENOCARCINOMA PANCREAS
     Dosage: 1000 MG/M2, WEEKLY
     Route: 042
     Dates: start: 20111128, end: 20111212
  2. ADONA [Concomitant]
     Indication: PRODUCT USED FOR UNKNOWN INDICATION
     Dosage: 100 MG, UID/QD
     Route: 042
     Dates: end: 20120129
  3. LYRICA [Concomitant]
     Indication: PRODUCT USED FOR UNKNOWN INDICATION
     Dosage: 25 MG, UID/QD
     Route: 048
     Dates: end: 20120110
  4. LENDORMIN [Concomitant]
     Indication: PRODUCT USED FOR UNKNOWN INDICATION
     Dosage: 0.25 MG, UID/QD
     Route: 048
     Dates: end: 20120110
  5. ERLOTINIB HYDROCHLORIDE [Suspect]
     Indication: ADENOCARCINOMA PANCREAS
     Dosage: 100 MG, UID/QD
     Route: 048
     Dates: start: 20111128, end: 20120110
  6. PRIMPERAN TAB [Concomitant]
     Indication: PRODUCT USED FOR UNKNOWN INDICATION
     Dosage: 2 DF, UID/QD
     Route: 042
     Dates: end: 20120220
  7. BETAMETHASONE [Concomitant]
     Indication: PRODUCT USED FOR UNKNOWN INDICATION
     Dosage: 2 MG, UID/QD
     Route: 042
     Dates: end: 20120104
  8. BETAMETHASONE [Concomitant]
     Dosage: 1 MG, UID/QD
     Route: 042
     Dates: start: 20120106, end: 20120220
  9. SULBACTAM [Concomitant]
     Indication: PRODUCT USED FOR UNKNOWN INDICATION
     Dosage: 2 G, UID/QD
     Route: 042
     Dates: start: 20111221, end: 20111223
  10. LOXONIN [Concomitant]
     Indication: PRODUCT USED FOR UNKNOWN INDICATION
     Dosage: 3 DF, UID/QD
     Route: 048
     Dates: end: 20120110
  11. GEMCITABINE HYDROCHLORIDE [Concomitant]
     Dosage: 1000 MG/M2, WEEKLY
     Route: 042
     Dates: start: 20111226, end: 20120103
  12. MORPHINE HCL ELIXIR [Concomitant]
     Dosage: 40 MG, UID/QD
     Route: 042
     Dates: start: 20111129, end: 20120220
  13. MIRACLID [Concomitant]
     Indication: PRODUCT USED FOR UNKNOWN INDICATION
     Dosage: 2 DF, UID/QD
     Route: 042
     Dates: end: 20120220
  14. MORPHINE HCL ELIXIR [Concomitant]
     Indication: PRODUCT USED FOR UNKNOWN INDICATION
     Dosage: 20 MG, UID/QD
     Route: 042
     Dates: end: 20111128
  15. NEXIUM [Concomitant]
     Indication: PRODUCT USED FOR UNKNOWN INDICATION
     Dosage: 20 MG, UID/QD
     Route: 048
     Dates: end: 20120110

REACTIONS (11)
  - BLOOD FIBRINOGEN DECREASED [None]
  - HEPATIC FUNCTION ABNORMAL [None]
  - DUODENAL STENOSIS [None]
  - SHOCK [None]
  - CEREBRAL INFARCTION [None]
  - DIABETES INSIPIDUS [None]
  - WHITE BLOOD CELL COUNT INCREASED [None]
  - PLATELET COUNT DECREASED [None]
  - JAUNDICE CHOLESTATIC [None]
  - PROTHROMBIN TIME PROLONGED [None]
  - RENAL FAILURE [None]
